FAERS Safety Report 6157665-6 (Version None)
Quarter: 2009Q2

REPORT INFORMATION
  Report Type: 
  Country: None (occurrence: None)
  Receive Date: 20090414
  Receipt Date: 20090414
  Transmission Date: 20091009
  Serious: Yes (Other)
  Sender: FDA-Public Use
  Company Number: None

PATIENT
  Sex: Male
  Weight: 64.4108 kg

DRUGS (1)
  1. YASMIN [Suspect]
     Indication: CONTRACEPTION
     Dosage: 1/ DAY DAILY PO
     Route: 048

REACTIONS (5)
  - ANXIETY [None]
  - EAR DISCOMFORT [None]
  - HEART RATE INCREASED [None]
  - MUSCLE SPASMS [None]
  - PANIC ATTACK [None]
